FAERS Safety Report 18363652 (Version 1)
Quarter: 2020Q4

REPORT INFORMATION
  Report Type: Spontaneous
  Country: CA (occurrence: CA)
  Receive Date: 20201009
  Receipt Date: 20201009
  Transmission Date: 20210114
  Serious: Yes (Other)
  Sender: FDA-Public Use
  Company Number: CA-SUN PHARMACEUTICAL INDUSTRIES LTD-2020R1-263708

PATIENT
  Sex: Male

DRUGS (1)
  1. RAN-METFORMIN [Suspect]
     Active Substance: METFORMIN HYDROCHLORIDE
     Indication: TYPE 2 DIABETES MELLITUS
     Route: 065

REACTIONS (5)
  - Organ failure [Unknown]
  - Emotional distress [Unknown]
  - Bladder cancer [Unknown]
  - Colon cancer [Unknown]
  - Product quality issue [Unknown]
